FAERS Safety Report 6420925-5 (Version None)
Quarter: 2009Q4

REPORT INFORMATION
  Report Type: 
  Country: None (occurrence: None)
  Receive Date: 20091030
  Receipt Date: 20091020
  Transmission Date: 20100525
  Serious: Yes (Other)
  Sender: FDA-Public Use
  Company Number: US-JNJFOC-20090806531

PATIENT
  Sex: Male
  Weight: 104.33 kg

DRUGS (6)
  1. RISPERDAL CONSTA [Suspect]
     Route: 030
  2. RISPERDAL CONSTA [Suspect]
     Indication: SCHIZOPHRENIA
     Route: 030
  3. SEROQUEL [Suspect]
     Indication: DRUG USE FOR UNKNOWN INDICATION
     Route: 048
  4. ZYPREXA [Concomitant]
     Indication: SLEEP DISORDER THERAPY
     Dosage: 30 TO 40 MG
     Route: 065
  5. TRICOR [Concomitant]
     Indication: BLOOD CHOLESTEROL INCREASED
     Dosage: 30 TO 40 MG
     Route: 048
  6. TRAZODONE [Concomitant]
     Indication: SLEEP DISORDER THERAPY
     Route: 065

REACTIONS (21)
  - ABASIA [None]
  - AGITATION [None]
  - ANXIETY [None]
  - BLOOD CHOLESTEROL INCREASED [None]
  - BLOOD TRIGLYCERIDES INCREASED [None]
  - CONJUNCTIVITIS [None]
  - CONSTIPATION [None]
  - DEPRESSION [None]
  - DIPLOPIA [None]
  - DIZZINESS [None]
  - DRY EYE [None]
  - EAR PAIN [None]
  - EYE DISORDER [None]
  - HAEMATOCHEZIA [None]
  - HEADACHE [None]
  - INJURY [None]
  - INSOMNIA [None]
  - NASAL CONGESTION [None]
  - VERTIGO [None]
  - VOMITING [None]
  - WEIGHT INCREASED [None]
